FAERS Safety Report 15629852 (Version 1)
Quarter: 2018Q4

REPORT INFORMATION
  Report Type: Spontaneous
  Country: CA (occurrence: CA)
  Receive Date: 20181117
  Receipt Date: 20181117
  Transmission Date: 20190205
  Serious: Yes (Hospitalization)
  Sender: FDA-Public Use
  Company Number: PHHY2018CA152383

PATIENT
  Age: 52 Year
  Sex: Male

DRUGS (2)
  1. DABRAFENIB [Suspect]
     Active Substance: DABRAFENIB
     Indication: MALIGNANT MELANOMA STAGE III
     Dosage: UNK
     Route: 065
     Dates: start: 20150810
  2. TRAMETINIB [Suspect]
     Active Substance: TRAMETINIB
     Indication: MALIGNANT MELANOMA STAGE III
     Dosage: UNK
     Route: 065
     Dates: start: 20150810

REACTIONS (4)
  - Pericardial effusion [Unknown]
  - Weight increased [Unknown]
  - Cardiac tamponade [Unknown]
  - Oedema peripheral [Unknown]
